FAERS Safety Report 24838570 (Version 1)
Quarter: 2025Q1

REPORT INFORMATION
  Report Type: Spontaneous
  Country: FI (occurrence: FI)
  Receive Date: 20250113
  Receipt Date: 20250113
  Transmission Date: 20250408
  Serious: Yes (Hospitalization, Other)
  Sender: COVIS PHARMA GMBH
  Company Number: FI-Covis Pharma Europe B.V.-2025COV00023

PATIENT
  Age: 54 Year
  Sex: Female

DRUGS (16)
  1. ALVESCO [Suspect]
     Active Substance: CICLESONIDE
     Route: 065
     Dates: start: 2013
  2. ALVESCO [Suspect]
     Active Substance: CICLESONIDE
     Route: 065
  3. PREDNISOLONE [Suspect]
     Active Substance: PREDNISOLONE
  4. PREDNISOLONE [Suspect]
     Active Substance: PREDNISOLONE
  5. SERETIDE [Suspect]
     Active Substance: FLUTICASONE PROPIONATE\SALMETEROL XINAFOATE
     Dates: start: 2013
  6. ALBUTEROL [Suspect]
     Active Substance: ALBUTEROL
     Dates: start: 2013
  7. SINGULAIR [Suspect]
     Active Substance: MONTELUKAST SODIUM
     Dates: start: 2013
  8. THEOPHYLLINE [Suspect]
     Active Substance: THEOPHYLLINE
     Dates: start: 2013
  9. INDACATEROL [Suspect]
     Active Substance: INDACATEROL
     Dates: start: 2013
  10. ROFLUMILAST [Suspect]
     Active Substance: ROFLUMILAST
     Dates: start: 2016
  11. FLUTICASONE FUROATE\VILANTEROL TRIFENATATE [Suspect]
     Active Substance: FLUTICASONE FUROATE\VILANTEROL TRIFENATATE
  12. MONTELUKAST [Suspect]
     Active Substance: MONTELUKAST
  13. ROFLUMILAST [Suspect]
     Active Substance: ROFLUMILAST
  14. CETIRIZINE HYDROCHLORIDE [Suspect]
     Active Substance: CETIRIZINE HYDROCHLORIDE
  15. DYMISTA [Suspect]
     Active Substance: AZELASTINE HYDROCHLORIDE\FLUTICASONE PROPIONATE
  16. TEZEPELUMAB [Suspect]
     Active Substance: TEZEPELUMAB
     Dates: start: 202403

REACTIONS (3)
  - Pneumonia [Unknown]
  - Adrenal insufficiency [Unknown]
  - Asthma [Recovered/Resolved]

NARRATIVE: CASE EVENT DATE: 20130101
